FAERS Safety Report 22193212 (Version 1)
Quarter: 2023Q2

REPORT INFORMATION
  Report Type: Spontaneous
  Country: US (occurrence: US)
  Receive Date: 20230410
  Receipt Date: 20230410
  Transmission Date: 20230722
  Serious: No
  Sender: FDA-Public Use
  Company Number: US-TRIS PHARMA, INC.-23US010796

PATIENT

DRUGS (4)
  1. DYANAVEL XR [Suspect]
     Active Substance: AMPHETAMINE
     Indication: Attention deficit hyperactivity disorder
     Dosage: 7.5 MILLIGRAM
     Route: 048
     Dates: start: 202303
  2. DYANAVEL XR [Suspect]
     Active Substance: AMPHETAMINE
     Dosage: 7.5 MILLIGRAM
     Route: 048
     Dates: end: 202303
  3. DYANAVEL XR [Suspect]
     Active Substance: AMPHETAMINE
     Dosage: 15 MILLIGRAM
     Route: 048
     Dates: start: 20230224
  4. TESTOSTERONE [Concomitant]
     Active Substance: TESTOSTERONE
     Indication: Product used for unknown indication
     Dosage: UNK

REACTIONS (5)
  - Myalgia [Not Recovered/Not Resolved]
  - Arthralgia [Not Recovered/Not Resolved]
  - Pain in extremity [Not Recovered/Not Resolved]
  - Erythema [Not Recovered/Not Resolved]
  - Off label use [Not Recovered/Not Resolved]

NARRATIVE: CASE EVENT DATE: 20230224
